APPROVED DRUG PRODUCT: HYDROCHLOROTHIAZIDE INTENSOL
Active Ingredient: HYDROCHLOROTHIAZIDE
Strength: 100MG/ML
Dosage Form/Route: SOLUTION;ORAL
Application: A088588 | Product #001
Applicant: ROXANE LABORATORIES INC
Approved: Jul 2, 1984 | RLD: No | RS: No | Type: DISCN